FAERS Safety Report 25545918 (Version 2)
Quarter: 2025Q3

REPORT INFORMATION
  Report Type: Spontaneous
  Country: EU (occurrence: EU)
  Receive Date: 20250712
  Receipt Date: 20250729
  Transmission Date: 20251020
  Serious: Yes (Other)
  Sender: ALEXION PHARMACEUTICALS
  Company Number: EU-AstraZeneca-CH-00907052A

PATIENT
  Age: 66 Year
  Sex: Female

DRUGS (3)
  1. IMFINZI [Suspect]
     Active Substance: DURVALUMAB
     Indication: Endometrial cancer
     Dosage: 1120 MILLIGRAM, Q3W
     Dates: start: 20250101, end: 20250531
  2. CARBOPLATIN [Concomitant]
     Active Substance: CARBOPLATIN
     Route: 065
  3. PACLITAXEL [Concomitant]
     Active Substance: PACLITAXEL
     Route: 065

REACTIONS (2)
  - Autoimmune hypothyroidism [Recovered/Resolved]
  - Autoimmune hepatitis [Recovered/Resolved]

NARRATIVE: CASE EVENT DATE: 20250101
